FAERS Safety Report 14750831 (Version 1)
Quarter: 2018Q2

REPORT INFORMATION
  Report Type: Spontaneous
  Country: US (occurrence: US)
  Receive Date: 20180412
  Receipt Date: 20180412
  Transmission Date: 20180711
  Serious: Yes (Other)
  Sender: FDA-Public Use
  Company Number: US-PROCTER_AND_GAMBLE-GS18042086

PATIENT
  Age: 62 Year
  Sex: Female

DRUGS (1)
  1. P+GUNKNONPGBSSNPGZBSS# (BISMUTH SUBSALICYLATE) [Suspect]
     Active Substance: BISMUTH SUBSALICYLATE
     Dosage: 8.3 G DAILY OVER THE 5 DAYS PRIOR
     Route: 048

REACTIONS (16)
  - International normalised ratio increased [Recovered/Resolved]
  - Diarrhoea [Unknown]
  - Coagulation factor V level decreased [Unknown]
  - Toxicity to various agents [Unknown]
  - Drug level increased [Unknown]
  - Disorientation [Recovered/Resolved]
  - Activated partial thromboplastin time prolonged [Unknown]
  - Mood altered [Recovered/Resolved]
  - Blood bicarbonate decreased [Unknown]
  - Analgesic drug level increased [Recovered/Resolved]
  - Coagulopathy [Unknown]
  - Confusional state [Recovered/Resolved]
  - Prothrombin time prolonged [Unknown]
  - PCO2 decreased [Unknown]
  - Overdose [Unknown]
  - Incorrect drug administration duration [Unknown]
